FAERS Safety Report 7017768-0 (Version None)
Quarter: 2010Q3

REPORT INFORMATION
  Report Type: 
  Country: None (occurrence: None)
  Receive Date: 20100928
  Receipt Date: 20080115
  Transmission Date: 20110219
  Serious: Yes (Other)
  Sender: FDA-Public Use
  Company Number: BR-RANBAXY-2008R5-12698

PATIENT

DRUGS (1)
  1. ISOTRETINOINA [Suspect]
     Indication: ACNE
     Dosage: 30 MG, UNK
     Route: 048

REACTIONS (1)
  - PREGNANCY [None]
